FAERS Safety Report 20642667 (Version 1)
Quarter: 2022Q1

REPORT INFORMATION
  Report Type: Spontaneous
  Country: US (occurrence: US)
  Receive Date: 20220328
  Receipt Date: 20220328
  Transmission Date: 20220423
  Serious: No
  Sender: FDA-Public Use
  Company Number: US-ALLERGAN-2132384US

PATIENT
  Sex: Female

DRUGS (1)
  1. LUMIGAN [Suspect]
     Active Substance: BIMATOPROST
     Indication: Product used for unknown indication
     Dosage: 2 GTT
     Route: 047

REACTIONS (4)
  - Ocular icterus [Unknown]
  - Eye disorder [Unknown]
  - Depressed mood [Unknown]
  - Eye irritation [Unknown]

NARRATIVE: CASE EVENT DATE: 20210915
